FAERS Safety Report 22078846 (Version 1)
Quarter: 2023Q1

REPORT INFORMATION
  Report Type: Spontaneous
  Country: US (occurrence: US)
  Receive Date: 20230309
  Receipt Date: 20230309
  Transmission Date: 20230417
  Serious: No
  Sender: FDA-Public Use
  Company Number: US-SUNOVION-2023SUN000382

PATIENT
  Sex: Female

DRUGS (1)
  1. KYNMOBI [Suspect]
     Active Substance: APOMORPHINE HYDROCHLORIDE
     Dosage: UNK
     Route: 060

REACTIONS (4)
  - Tongue disorder [Unknown]
  - Tongue blistering [Unknown]
  - Oral discomfort [Unknown]
  - Oral herpes [Unknown]

NARRATIVE: CASE EVENT DATE: 20230307
